FAERS Safety Report 15411287 (Version 1)
Quarter: 2018Q3

REPORT INFORMATION
  Report Type: Spontaneous
  Country: US (occurrence: US)
  Receive Date: 20180921
  Receipt Date: 20180921
  Transmission Date: 20181010
  Serious: No
  Sender: FDA-Public Use
  Company Number: US-PFIZER INC-2018381264

PATIENT
  Age: 85 Year
  Sex: Female

DRUGS (2)
  1. LYRICA [Suspect]
     Active Substance: PREGABALIN
     Dosage: UNK, 3X/DAY (HIGHER DOSE)
  2. KLOMETOL [Concomitant]
     Dosage: UNK (100 AS THAT A DAY)

REACTIONS (1)
  - Loss of personal independence in daily activities [Unknown]
